FAERS Safety Report 15431796 (Version 4)
Quarter: 2019Q4

REPORT INFORMATION
  Report Type: Spontaneous
  Country: US (occurrence: US)
  Receive Date: 20180926
  Receipt Date: 20191216
  Transmission Date: 20200122
  Serious: Yes (Hospitalization)
  Sender: FDA-Public Use
  Company Number: US-ACTELION-A-US2018-179210

PATIENT
  Age: 38 Year
  Sex: Female

DRUGS (2)
  1. OPSUMIT [Suspect]
     Active Substance: MACITENTAN
     Dosage: 10 MG, QD
     Route: 048
  2. OPSUMIT [Suspect]
     Active Substance: MACITENTAN
     Indication: PULMONARY ARTERIAL HYPERTENSION
     Dosage: 10 MG, QD
     Route: 048

REACTIONS (8)
  - Dyspnoea exertional [Not Recovered/Not Resolved]
  - Nasopharyngitis [Unknown]
  - Hepatic congestion [Recovered/Resolved]
  - Dyspnoea [Not Recovered/Not Resolved]
  - Coma hepatic [Recovered/Resolved]
  - Shock [Recovered/Resolved]
  - Influenza [Unknown]
  - Scleroderma [Unknown]

NARRATIVE: CASE EVENT DATE: 201802
